FAERS Safety Report 8580907 (Version 3)
Quarter: 2012Q4

REPORT INFORMATION
  Report Type: 
  Country: FR (occurrence: FR)
  Receive Date: 20120525
  Receipt Date: 20121203
  Transmission Date: 20130627
  Serious: Yes (Other)
  Sender: FDA-Public Use
  Company Number: PHHY2012FR043142

PATIENT
  Age: 64 Year
  Sex: Male

DRUGS (5)
  1. STALEVO [Suspect]
     Indication: PARKINSON^S DISEASE
     Dosage: 3 DF, UNK
     Route: 048
     Dates: start: 200906
  2. MODOPAR [Concomitant]
     Dosage: 1.25 DF, QD
  3. TRIVASTAL [Concomitant]
     Dosage: 3 DF, daily
     Dates: start: 2004
  4. ARTOTEC [Concomitant]
  5. MYOLASTAN [Concomitant]

REACTIONS (15)
  - Cholangiocarcinoma [Unknown]
  - Metastases to lymph nodes [Unknown]
  - Cholestasis [Unknown]
  - Cholelithiasis [Unknown]
  - Flank pain [Unknown]
  - Bile duct stenosis [Unknown]
  - Biliary dilatation [Unknown]
  - Pancreatitis [Recovered/Resolved]
  - Dysplasia [Unknown]
  - Benign prostatic hyperplasia [Unknown]
  - Prostatic disorder [Unknown]
  - Chromaturia [Unknown]
  - Orchitis [Unknown]
  - Pyrexia [Unknown]
  - Abdominal pain [Unknown]
